FAERS Safety Report 12350789 (Version 1)
Quarter: 2016Q2

REPORT INFORMATION
  Report Type: Spontaneous
  Country: US (occurrence: None)
  Receive Date: 20160509
  Receipt Date: 20160509
  Transmission Date: 20160815
  Serious: Yes (Other)
  Sender: FDA-Public Use
  Company Number: None

PATIENT
  Age: 35 Year
  Sex: Female
  Weight: 106.6 kg

DRUGS (14)
  1. TRAZODONE [Concomitant]
     Active Substance: TRAZODONE HYDROCHLORIDE
  2. ONE A DAY WOMEN^S MULTIVITAMINS [Concomitant]
  3. LITHIUM. [Concomitant]
     Active Substance: LITHIUM
  4. PRISTIQ EXTENDED-RELEASE [Suspect]
     Active Substance: DESVENLAFAXINE SUCCINATE
     Indication: MAJOR DEPRESSION
     Dosage: 1 PILL ONCE A DAY IN THE MORNING, AT BEDTIME BY MOUTH
     Route: 048
     Dates: start: 2005, end: 20160504
  5. PRISTIQ EXTENDED-RELEASE [Suspect]
     Active Substance: DESVENLAFAXINE SUCCINATE
     Indication: SCHIZOAFFECTIVE DISORDER
     Dosage: 1 PILL ONCE A DAY IN THE MORNING, AT BEDTIME BY MOUTH
     Route: 048
     Dates: start: 2005, end: 20160504
  6. CALTRATE WITH VITAMIN D [Concomitant]
     Active Substance: CALCIUM CARBONATE\CHOLECALCIFEROL
  7. LATUDA [Suspect]
     Active Substance: LURASIDONE HYDROCHLORIDE
  8. REXULTI [Concomitant]
     Active Substance: BREXPIPRAZOLE
  9. EFFEXOR [Concomitant]
     Active Substance: VENLAFAXINE HYDROCHLORIDE
  10. METFORMIN [Concomitant]
     Active Substance: METFORMIN HYDROCHLORIDE
  11. CLONAZEPAM. [Concomitant]
     Active Substance: CLONAZEPAM
  12. ADVAIR HFA [Concomitant]
     Active Substance: FLUTICASONE PROPIONATE\SALMETEROL XINAFOATE
  13. PRISTIQ EXTENDED-RELEASE [Suspect]
     Active Substance: DESVENLAFAXINE SUCCINATE
     Indication: PSYCHOTIC DISORDER
     Dosage: 1 PILL ONCE A DAY IN THE MORNING, AT BEDTIME BY MOUTH
     Route: 048
     Dates: start: 2005, end: 20160504
  14. LEVOTHYROXINE. [Concomitant]
     Active Substance: LEVOTHYROXINE

REACTIONS (3)
  - Hyperhidrosis [None]
  - Fatigue [None]
  - Somnolence [None]

NARRATIVE: CASE EVENT DATE: 20150101
